FAERS Safety Report 10031083 (Version 2)
Quarter: 2014Q2

REPORT INFORMATION
  Report Type: Spontaneous
  Country: US (occurrence: US)
  Receive Date: 20140324
  Receipt Date: 20140418
  Transmission Date: 20141212
  Serious: No
  Sender: FDA-Public Use
  Company Number: US-BIOGENIDEC-2014BI024521

PATIENT
  Sex: Female

DRUGS (1)
  1. TYSABRI [Suspect]
     Indication: MULTIPLE SCLEROSIS
     Route: 042
     Dates: start: 20130612

REACTIONS (8)
  - Balance disorder [Not Recovered/Not Resolved]
  - Feeling hot [Unknown]
  - Paraesthesia [Unknown]
  - Somnolence [Unknown]
  - Cognitive disorder [Unknown]
  - Emotional disorder [Unknown]
  - Dysphonia [Not Recovered/Not Resolved]
  - Headache [Unknown]
